FAERS Safety Report 5240951-1 (Version None)
Quarter: 2007Q1

REPORT INFORMATION
  Report Type: 
  Country: None (occurrence: None)
  Receive Date: 20061201
  Receipt Date: 20060805
  Transmission Date: 20070707
  Serious: No
  Sender: FDA-Public Use
  Company Number: 2006PV018920

PATIENT
  Sex: Female

DRUGS (3)
  1. BYETTA [Suspect]
     Indication: DIABETES MELLITUS NON-INSULIN-DEPENDENT
     Dosage: 10 MCG;TID;SC
     Route: 058
     Dates: start: 20060802
  2. METFORMIN HCL [Concomitant]
  3. METOPROLOL SUCCINATE [Concomitant]

REACTIONS (6)
  - BLOOD GLUCOSE INCREASED [None]
  - DIARRHOEA [None]
  - DYSPNOEA [None]
  - FEELING JITTERY [None]
  - HYPERTENSION [None]
  - NAUSEA [None]
